FAERS Safety Report 21023891 (Version 1)
Quarter: 2022Q3

REPORT INFORMATION
  Report Type: Report from Study
  Country: BR (occurrence: BR)
  Receive Date: 20220629
  Receipt Date: 20220629
  Transmission Date: 20221027
  Serious: Yes (Hospitalization, Other)
  Sender: FDA-Public Use
  Company Number: BR-NOVARTISPH-NVSC2022BR146825

PATIENT
  Age: 93 Year
  Sex: Female

DRUGS (1)
  1. EXELON [Suspect]
     Active Substance: RIVASTIGMINE TARTRATE
     Indication: Dementia Alzheimer^s type
     Dosage: 13.3 MG, QD (EXTENDED RELEASE,10 PATCH)
     Route: 062
     Dates: start: 2012

REACTIONS (3)
  - Retinal degeneration [Unknown]
  - Joint lock [Unknown]
  - Arthropathy [Unknown]

NARRATIVE: CASE EVENT DATE: 20220505
